FAERS Safety Report 8409691-1 (Version None)
Quarter: 2012Q2

REPORT INFORMATION
  Report Type: 
  Country: None (occurrence: None)
  Receive Date: 20120529
  Receipt Date: 20120515
  Transmission Date: 20120825
  Serious: Yes (Other)
  Sender: FDA-Public Use
  Company Number: 1291610

PATIENT
  Age: 52 Year
  Sex: Female

DRUGS (6)
  1. IDARUBICIN HCL [Suspect]
     Indication: ACUTE PROMYELOCYTIC LEUKAEMIA
  2. TRETINOIN [Suspect]
     Indication: ACUTE PROMYELOCYTIC LEUKAEMIA
     Dosage: 45 MG/M 2 MILLIGRAM(S)/SQ. METER
  3. MERCAPTOPURINE [Suspect]
     Indication: ACUTE PROMYELOCYTIC LEUKAEMIA
     Dosage: 50 MG/M 2 MILLIGRAM(S)/SQ. METER
  4. METHOTREXATE [Suspect]
     Indication: ACUTE PROMYELOCYTIC LEUKAEMIA
     Dosage: 15 MG/M^2 PER WEEK
  5. NOVANTRONE [Suspect]
     Indication: ACUTE PROMYELOCYTIC LEUKAEMIA
     Dosage: 10 MG/M 2 MILLIGRAM(S)/SQ. METERE
  6. CYTARABINE [Suspect]
     Indication: REFRACTORY CYTOPENIA WITH MULTILINEAGE DYSPLASIA

REACTIONS (6)
  - REFRACTORY CYTOPENIA WITH MULTILINEAGE DYSPLASIA [None]
  - CHLOROMA [None]
  - OESOPHAGEAL MASS [None]
  - ACUTE MYELOID LEUKAEMIA [None]
  - GENE MUTATION [None]
  - MULTI-ORGAN FAILURE [None]
